FAERS Safety Report 17967520 (Version 1)
Quarter: 2020Q2

REPORT INFORMATION
  Report Type: Spontaneous
  Country: US (occurrence: US)
  Receive Date: 20200630
  Receipt Date: 20200630
  Transmission Date: 20200714
  Serious: Yes (Death)
  Sender: FDA-Public Use
  Company Number: None

PATIENT
  Age: 75 Year
  Sex: Female

DRUGS (10)
  1. FAMOTIDINE 20MG [Concomitant]
     Active Substance: FAMOTIDINE
  2. VITAMIN D 1000 UNITS SOFT GEL CAPS REXALL [Concomitant]
     Active Substance: VITAMIN D NOS
  3. ENTECAVIR. [Concomitant]
     Active Substance: ENTECAVIR
  4. MIRTAZEPINE 15MG [Concomitant]
  5. PANTOPRAZOLE 40 MG [Concomitant]
     Active Substance: PANTOPRAZOLE SODIUM
  6. POTASSIUM CL 20MEQ TABLETS [Concomitant]
  7. PREDNISONE 10MG TABLETS [Concomitant]
     Active Substance: PREDNISONE
  8. PROMACTA [Suspect]
     Active Substance: ELTROMBOPAG OLAMINE
     Indication: IMMUNE THROMBOCYTOPENIA
     Route: 048
     Dates: start: 20200609, end: 20200629
  9. ONDANSETRON. [Concomitant]
     Active Substance: ONDANSETRON
  10. VALGANCICLOVIR 450MG [Concomitant]
     Active Substance: VALACYCLOVIR HYDROCHLORIDE

REACTIONS (1)
  - Death [None]

NARRATIVE: CASE EVENT DATE: 20200629
